FAERS Safety Report 7276819-9 (Version None)
Quarter: 2011Q1

REPORT INFORMATION
  Report Type: 
  Country: None (occurrence: None)
  Receive Date: 20110207
  Receipt Date: 20110126
  Transmission Date: 20110831
  Serious: Yes (Hospitalization)
  Sender: FDA-Public Use
  Company Number: US-BIOGENIDEC-2010BI044819

PATIENT
  Sex: Female
  Weight: 49 kg

DRUGS (26)
  1. FENTANYL [Concomitant]
     Route: 062
  2. MACROBID [Concomitant]
     Indication: PROPHYLAXIS URINARY TRACT INFECTION
  3. SODIUM PHOSPHATE [Concomitant]
     Route: 054
  4. FENTANYL [Concomitant]
     Route: 062
  5. DULCOLAX [Concomitant]
     Route: 054
  6. CALCIUM GLUCONATE [Concomitant]
  7. SODIUM PHOSPHATE [Concomitant]
  8. BACLOFEN [Concomitant]
     Route: 048
  9. COLACE [Concomitant]
  10. FENTANYL [Concomitant]
     Route: 042
  11. DULOXETINE [Concomitant]
     Indication: DEPRESSION
  12. MORPHINE [Concomitant]
  13. POTASSIUM CHLORIDE [Concomitant]
  14. TYSABRI [Suspect]
     Indication: MULTIPLE SCLEROSIS
     Route: 042
     Dates: start: 20070830, end: 20100810
  15. DONEPEZIL HCL [Concomitant]
  16. PROCALAMINE [Concomitant]
  17. LOVENOX [Concomitant]
     Route: 058
  18. HYDROCODONE BITARTRATE [Concomitant]
     Indication: BREAKTHROUGH PAIN
  19. NICOTINE [Concomitant]
     Route: 062
  20. OMEPRAZOLE [Concomitant]
  21. DULOXETINE [Concomitant]
     Indication: PAIN
  22. ACETAMINOPHEN [Concomitant]
     Indication: BREAKTHROUGH PAIN
  23. MILK OF MAGNESIA TAB [Concomitant]
  24. ACETAMINOPHEN [Concomitant]
  25. INFLUENZA VACCINE [Concomitant]
  26. MAGNESIUM SULFATE [Concomitant]

REACTIONS (5)
  - MULTIPLE SCLEROSIS RELAPSE [None]
  - FALL [None]
  - URINARY TRACT INFECTION [None]
  - PAIN IN EXTREMITY [None]
  - GRAND MAL CONVULSION [None]
